FAERS Safety Report 4538988-0 (Version None)
Quarter: 2004Q4

REPORT INFORMATION
  Report Type: 
  Country: None (occurrence: None)
  Receive Date: 20041222
  Receipt Date: 20041202
  Transmission Date: 20050328
  Serious: Yes (Hospitalization, Other)
  Sender: FDA-Public Use
  Company Number: USA041184040

PATIENT
  Age: 50 Year
  Sex: Female

DRUGS (4)
  1. FORTEO [Suspect]
     Indication: OSTEOPOROSIS
     Dates: start: 20030201
  2. COUMADIN (WARAFARIN SODIUM) [Concomitant]
  3. ENBREL [Concomitant]
  4. METHOTREXATE [Concomitant]

REACTIONS (5)
  - ARTHROPATHY [None]
  - GAIT DISTURBANCE [None]
  - POST PROCEDURAL COMPLICATION [None]
  - THROMBOSIS [None]
  - VASCULAR RUPTURE [None]
